FAERS Safety Report 19885905 (Version 4)
Quarter: 2022Q3

REPORT INFORMATION
  Report Type: Spontaneous
  Country: BE (occurrence: BE)
  Receive Date: 20210927
  Receipt Date: 20220718
  Transmission Date: 20221026
  Serious: Yes (Hospitalization, Other)
  Sender: FDA-Public Use
  Company Number: BE-CELGENE-BEL-20210407526

PATIENT
  Age: 78 Year
  Sex: Male
  Weight: 89 kg

DRUGS (35)
  1. AZACITIDINE [Suspect]
     Active Substance: AZACITIDINE
     Indication: Myelodysplastic syndrome
     Dosage: 75 MILLIGRAM/SQ. METER, QD (FREQUENCY TEXT: DAYS 1-5,8 AND 9 OF EACH 28 DAY CYCLE)
     Route: 058
     Dates: start: 20210315
  2. VENETOCLAX [Suspect]
     Active Substance: VENETOCLAX
     Indication: Myelodysplastic syndrome
     Dosage: UNK (FREQUENCY TEXT: NOT PROVIDED)
     Route: 065
  3. AMOXICILLIN\CLAVULANATE POTASSIUM [Concomitant]
     Active Substance: AMOXICILLIN\CLAVULANATE POTASSIUM
     Indication: Pyrexia
     Dosage: UNK
     Route: 065
     Dates: start: 20210326, end: 20210330
  4. AMOXICILLIN\CLAVULANATE POTASSIUM [Concomitant]
     Active Substance: AMOXICILLIN\CLAVULANATE POTASSIUM
     Indication: Neutropenia
     Dosage: UNK
     Route: 065
     Dates: start: 20210405, end: 20210414
  5. SPIRONOLACTONE [Concomitant]
     Active Substance: SPIRONOLACTONE
     Indication: Hypertension
     Dosage: 25 MILLIGRAM
     Route: 048
     Dates: start: 2008, end: 20210315
  6. ATORVASTATIN [Concomitant]
     Active Substance: ATORVASTATIN
     Indication: Hypercholesterolaemia
     Dosage: 80 MILLIGRAM, QD
     Route: 048
     Dates: start: 200409, end: 20210322
  7. ATORVASTATIN [Concomitant]
     Active Substance: ATORVASTATIN
     Dosage: 40 MILLIGRAM, QD
     Route: 048
     Dates: start: 20210323, end: 20210325
  8. ATORVASTATIN [Concomitant]
     Active Substance: ATORVASTATIN
     Dosage: 80 MILLIGRAM, QD
     Route: 048
     Dates: start: 20210326
  9. AMLODIPINE [Concomitant]
     Active Substance: AMLODIPINE BESYLATE
     Indication: Hypertension
     Dosage: 5 MILLIGRAM, QD
     Route: 048
     Dates: start: 2020, end: 20210422
  10. ALLOPURINOL [Concomitant]
     Active Substance: ALLOPURINOL
     Indication: Prophylaxis
     Dosage: 300 MILLIGRAM
     Route: 048
     Dates: start: 20210315, end: 20210330
  11. ALLOPURINOL [Concomitant]
     Active Substance: ALLOPURINOL
     Indication: Blood creatinine increased
     Dosage: 300 MILLIGRAM
     Route: 048
     Dates: start: 20210421, end: 20210423
  12. FILGRASTIM [Concomitant]
     Active Substance: FILGRASTIM
     Indication: Neutropenia
     Dosage: 480 MICROGRAM
     Route: 058
     Dates: start: 20210326
  13. ACYCLOVIR [Concomitant]
     Active Substance: ACYCLOVIR
     Indication: Infection prophylaxis
     Dosage: 1200 MILLIGRAM
     Route: 048
     Dates: start: 20210329
  14. ACYCLOVIR [Concomitant]
     Active Substance: ACYCLOVIR
     Dosage: 400 MILLIGRAM(1200 MILLIGRAM)
     Route: 048
     Dates: start: 20210329
  15. CEFEPIME HYDROCHLORIDE [Concomitant]
     Active Substance: CEFEPIME HYDROCHLORIDE
     Indication: Febrile neutropenia
     Dosage: UNK
     Route: 065
     Dates: start: 20210323, end: 20210326
  16. TELMISARTAN [Concomitant]
     Active Substance: TELMISARTAN
     Indication: Hypertension
     Dosage: 80/12.5 MILLIGRAM
     Route: 048
     Dates: start: 200407, end: 20210421
  17. BISOPROLOL [Concomitant]
     Active Substance: BISOPROLOL
     Indication: Hypertension
     Dosage: 2.5 MILLIGRAM
     Route: 048
     Dates: start: 2008, end: 20210424
  18. BISOPROLOL [Concomitant]
     Active Substance: BISOPROLOL
     Indication: Cardiac failure
     Dosage: 25 MILLIGRAM, QD
     Route: 048
     Dates: start: 2008
  19. ACETAMINOPHEN [Concomitant]
     Active Substance: ACETAMINOPHEN
     Indication: Pyrexia
     Dosage: 1 GRAM
     Route: 048
     Dates: start: 20210322, end: 20210416
  20. ASPIRIN [Concomitant]
     Active Substance: ASPIRIN
     Indication: Carotid artery stenosis
     Dosage: 80 MILLIGRAM, QD(80 MILLIGRAM)
     Route: 048
     Dates: start: 20210405
  21. ASPIRIN [Concomitant]
     Active Substance: ASPIRIN
     Indication: Prophylaxis
     Dosage: 80 MILLIGRAM, QD(80 MILLIGRAM)
     Route: 048
     Dates: start: 200007, end: 20210329
  22. ASPIRIN [Concomitant]
     Active Substance: ASPIRIN
     Indication: Angioplasty
  23. ASPIRIN [Concomitant]
     Active Substance: ASPIRIN
     Indication: Coronary angioplasty
  24. CLOPIDOGREL [Concomitant]
     Active Substance: CLOPIDOGREL BISULFATE
     Indication: Myocardial infarction
     Dosage: 75 MILLIGRAM, QD
     Route: 048
     Dates: start: 20210414
  25. CLOPIDOGREL [Concomitant]
     Active Substance: CLOPIDOGREL BISULFATE
     Dosage: 75 MILLIGRAM, QD
     Route: 048
     Dates: start: 20140222, end: 20210323
  26. MOVICOL [Concomitant]
     Active Substance: POLYETHYLENE GLYCOL 3350\POTASSIUM CHLORIDE\SODIUM BICARBONATE\SODIUM CHLORIDE
     Indication: Constipation
     Dosage: UNK(FREQUENCY TEXT: AS REQUIRED )
     Route: 048
     Dates: start: 20210322
  27. SODIUM CHLORIDE [Concomitant]
     Active Substance: SODIUM CHLORIDE
     Indication: Prophylaxis
     Dosage: 1 LITER
     Route: 042
     Dates: start: 20210315, end: 20210315
  28. .ALPHA.-TOCOPHEROL ACETATE [Concomitant]
     Active Substance: .ALPHA.-TOCOPHEROL ACETATE
     Indication: Osteoporosis
     Dosage: 35 MILLIGRAM, QW
     Route: 048
     Dates: start: 20210204
  29. COVID-19 vaccine [Concomitant]
     Indication: Prophylaxis
     Dosage: UNK(FREQUENCY TEXT: NOT PROVIDED)
     Route: 030
     Dates: start: 20210508, end: 20210508
  30. COVID-19 vaccine [Concomitant]
     Dosage: UNK(FREQUENCY TEXT: NOT PROVIDED)
     Route: 030
     Dates: start: 20210403, end: 20210403
  31. RISEDRONATE SODIUM [Concomitant]
     Active Substance: RISEDRONATE SODIUM
     Indication: Osteoporosis
     Dosage: 35 MILLIGRAM, QW
     Route: 048
     Dates: start: 20210204
  32. TELMISARTAN PLUS [Concomitant]
     Indication: Hypertension
     Dosage: UNK (80/12.5 MG 1 IN 1 D)
     Route: 048
     Dates: start: 200407
  33. CHOLECALCIFEROL [Concomitant]
     Active Substance: CHOLECALCIFEROL
     Indication: Osteoporosis
     Dosage: 25000 INTERNATIONAL UNIT, MONTHLY (1 IN 1 M)
     Route: 048
  34. COMIRNATY [Concomitant]
     Active Substance: TOZINAMERAN
     Indication: Prophylaxis
     Dosage: UNK (~FREQUENCY TEXT: NOT PROVIDED, COVID 19 VACCINE COMIRNATY)
     Route: 030
     Dates: start: 20210508, end: 20210508
  35. COMIRNATY [Concomitant]
     Active Substance: TOZINAMERAN
     Dosage: UNK (FREQUENCY TEXT: NOT PROVIDED, COVID 19 VACCINE COMIRNATY)
     Route: 030
     Dates: start: 20210403, end: 20210403

REACTIONS (6)
  - Syncope [Recovered/Resolved]
  - General physical condition abnormal [Not Recovered/Not Resolved]
  - Febrile neutropenia [Recovered/Resolved]
  - General physical health deterioration [Recovered/Resolved]
  - Orthostatic hypotension [Recovered/Resolved]
  - Fatigue [Recovered/Resolved]

NARRATIVE: CASE EVENT DATE: 20210418
